FAERS Safety Report 9529674 (Version 1)
Quarter: 2013Q3

REPORT INFORMATION
  Report Type: Spontaneous
  Country: US (occurrence: US)
  Receive Date: 20130917
  Receipt Date: 20130917
  Transmission Date: 20140515
  Serious: Yes (Other)
  Sender: FDA-Public Use
  Company Number: US-GLAXOSMITHKLINE-A1039887A

PATIENT
  Age: 48 Year
  Sex: Female

DRUGS (2)
  1. ADVAIR [Suspect]
     Indication: RESPIRATORY DISORDER
     Route: 065
     Dates: start: 201209
  2. VENTOLIN [Suspect]
     Indication: RESPIRATORY DISORDER
     Dates: start: 20080101

REACTIONS (2)
  - Ankle operation [Unknown]
  - Joint arthroplasty [Unknown]
